FAERS Safety Report 7936295-7 (Version None)
Quarter: 2011Q4

REPORT INFORMATION
  Report Type: 
  Country: None (occurrence: None)
  Receive Date: 20111123
  Receipt Date: 20111114
  Transmission Date: 20120403
  Serious: Yes (Hospitalization)
  Sender: FDA-Public Use
  Company Number: US-BAYER-2011-028373

PATIENT
  Age: 18 Year
  Sex: Female
  Weight: 47 kg

DRUGS (16)
  1. YAZ [Suspect]
     Indication: CONTRACEPTION
     Dosage: UNK
     Dates: start: 20060901, end: 20070101
  2. FOLIC ACID [Concomitant]
     Dosage: UNK
     Dates: start: 19970801, end: 20081101
  3. YASMIN [Suspect]
     Indication: CONTRACEPTION
     Dosage: UNK
     Dates: start: 20060901, end: 20070101
  4. YAZ [Suspect]
     Indication: DYSMENORRHOEA
  5. YASMIN [Suspect]
     Indication: ACNE
  6. ASACOL [Concomitant]
     Dosage: UNK
     Dates: start: 19980701, end: 20070101
  7. CEDAX [Concomitant]
     Dosage: UNK
     Dates: start: 20070120
  8. YAZ [Suspect]
     Indication: ACNE
  9. NAPROXEN [Concomitant]
     Dosage: UNK
     Dates: start: 20060901
  10. HYDROCORTISONE [Concomitant]
     Indication: PAIN
     Dosage: UNK
     Dates: start: 20070115
  11. SULFASALAZINE [Concomitant]
     Indication: COLITIS
     Dosage: UNK
     Dates: start: 19991101
  12. YAZ [Suspect]
     Indication: PREMENSTRUAL SYNDROME
  13. IRON [Concomitant]
  14. YASMIN [Suspect]
     Indication: DYSMENORRHOEA
  15. YASMIN [Suspect]
     Indication: PREMENSTRUAL SYNDROME
  16. METRONIDAZOLE [Concomitant]
     Dosage: UNK
     Dates: start: 20061201

REACTIONS (6)
  - PELVIC VENOUS THROMBOSIS [None]
  - PAIN [None]
  - INJURY [None]
  - DEEP VEIN THROMBOSIS [None]
  - RENAL VEIN THROMBOSIS [None]
  - PULMONARY EMBOLISM [None]
